FAERS Safety Report 9033204 (Version 2)
Quarter: 2013Q2

REPORT INFORMATION
  Report Type: Spontaneous
  Country: DK (occurrence: CA)
  Receive Date: 20130128
  Receipt Date: 20130524
  Transmission Date: 20140414
  Serious: Yes (Other)
  Sender: FDA-Public Use
  Company Number: CA-FRI-1000042168

PATIENT
  Age: 27 Year
  Sex: Female
  Weight: 64 kg

DRUGS (1)
  1. ESCITALOPRAM [Suspect]
     Indication: PANIC ATTACK
     Dosage: 20 MG
     Route: 048
     Dates: start: 20111201, end: 20120824

REACTIONS (7)
  - Nasal disorder [Not Recovered/Not Resolved]
  - Haematoma [Not Recovered/Not Resolved]
  - Menorrhagia [Not Recovered/Not Resolved]
  - Petechiae [Not Recovered/Not Resolved]
  - Blood disorder [Not Recovered/Not Resolved]
  - Epistaxis [Not Recovered/Not Resolved]
  - Impaired healing [Not Recovered/Not Resolved]
